FAERS Safety Report 16075889 (Version 1)
Quarter: 2019Q1

REPORT INFORMATION
  Report Type: Spontaneous
  Country: US (occurrence: US)
  Receive Date: 20190315
  Receipt Date: 20190315
  Transmission Date: 20190418
  Serious: Yes (Other)
  Sender: FDA-Public Use
  Company Number: US-ROCHE-2283960

PATIENT
  Sex: Female
  Weight: 59.02 kg

DRUGS (1)
  1. LUCENTIS [Suspect]
     Active Substance: RANIBIZUMAB
     Indication: NEOVASCULAR AGE-RELATED MACULAR DEGENERATION
     Route: 065
     Dates: start: 2007

REACTIONS (4)
  - Malaise [Unknown]
  - Visual impairment [Unknown]
  - Dry age-related macular degeneration [Unknown]
  - Blindness [Not Recovered/Not Resolved]
